FAERS Safety Report 4969262-6 (Version None)
Quarter: 2006Q2

REPORT INFORMATION
  Report Type: 
  Country: None (occurrence: None)
  Receive Date: 20060405
  Receipt Date: 20060323
  Transmission Date: 20061013
  Serious: Yes (Other)
  Sender: FDA-Public Use
  Company Number: 2006041941

PATIENT
  Sex: Male
  Weight: 108.8633 kg

DRUGS (5)
  1. CELEBREX [Suspect]
     Indication: ANTIINFLAMMATORY THERAPY
     Dates: start: 20001023
  2. CELEBREX [Suspect]
     Indication: DEPRESSION
     Dates: start: 20001023
  3. ZOLOFT [Suspect]
     Indication: DEPRESSION
     Dates: start: 20001111
  4. IBUPROFEN [Suspect]
     Indication: HEADACHE
  5. ALL OTHER THERAPEUTIC PRODUCTS [Concomitant]

REACTIONS (20)
  - ABASIA [None]
  - ARTHRALGIA [None]
  - BACK DISORDER [None]
  - CARDIAC FLUTTER [None]
  - CARDIOVASCULAR DISORDER [None]
  - CHEST PAIN [None]
  - CHROMATURIA [None]
  - DYSPNOEA [None]
  - ECONOMIC PROBLEM [None]
  - FLUID RETENTION [None]
  - GENERALISED OEDEMA [None]
  - HYPERTENSION [None]
  - HYPOAESTHESIA [None]
  - LOSS OF CONSCIOUSNESS [None]
  - MIGRAINE [None]
  - PALPITATIONS [None]
  - PARAESTHESIA [None]
  - RENAL PAIN [None]
  - ROAD TRAFFIC ACCIDENT [None]
  - VISION BLURRED [None]
